FAERS Safety Report 16199706 (Version 5)
Quarter: 2020Q1

REPORT INFORMATION
  Report Type: Report from Study
  Country: OM (occurrence: OM)
  Receive Date: 20190415
  Receipt Date: 20200310
  Transmission Date: 20200409
  Serious: Yes (Hospitalization, Other)
  Sender: FDA-Public Use
  Company Number: PHHY2018OM131743

PATIENT
  Age: 16 Year
  Sex: Male
  Weight: 46 kg

DRUGS (7)
  1. EXJADE [Suspect]
     Active Substance: DEFERASIROX
     Indication: LIVER IRON CONCENTRATION INCREASED
     Dosage: 35 MG/KG, (1500 MG) QD
     Route: 048
     Dates: start: 201703
  2. EXJADE [Suspect]
     Active Substance: DEFERASIROX
     Indication: SERUM FERRITIN INCREASED
     Dosage: UNK
     Route: 065
     Dates: start: 20180503, end: 20180503
  3. EXJADE [Suspect]
     Active Substance: DEFERASIROX
     Dosage: UNK
     Route: 065
     Dates: start: 20180504, end: 20180510
  4. MEROPENEM. [Concomitant]
     Active Substance: MEROPENEM
     Indication: PRODUCT USED FOR UNKNOWN INDICATION
     Dosage: UNK
     Route: 065
  5. EXJADE [Suspect]
     Active Substance: DEFERASIROX
     Dosage: UNK
     Route: 065
     Dates: start: 20180504, end: 20180506
  6. EXJADE [Suspect]
     Active Substance: DEFERASIROX
     Dosage: UNK
     Route: 065
     Dates: start: 20180508, end: 20180909
  7. EXJADE [Suspect]
     Active Substance: DEFERASIROX
     Dosage: UNK
     Route: 065
     Dates: start: 20180507, end: 20180513

REACTIONS (8)
  - Portal vein thrombosis [Recovered/Resolved]
  - Sepsis [Recovered/Resolved]
  - Haemoglobin decreased [Unknown]
  - Blood pressure decreased [Unknown]
  - Chest pain [Unknown]
  - Post procedural haemorrhage [Recovered/Resolved]
  - Vomiting [Unknown]
  - Procedural pain [Unknown]

NARRATIVE: CASE EVENT DATE: 20180502
